FAERS Safety Report 25434534 (Version 2)
Quarter: 2025Q4

REPORT INFORMATION
  Report Type: Spontaneous
  Country: US (occurrence: US)
  Receive Date: 20250613
  Receipt Date: 20251115
  Transmission Date: 20260117
  Serious: No
  Sender: SANOFI AVENTIS
  Company Number: US-SA-2025SA167916

PATIENT
  Sex: Female
  Weight: 61.36 kg

DRUGS (8)
  1. DUPIXENT [Suspect]
     Active Substance: DUPILUMAB
     Indication: Neurodermatitis
     Dosage: 600 MG, 1X
     Route: 058
  2. DUPIXENT [Suspect]
     Active Substance: DUPILUMAB
     Dosage: 300 MG, QOW
     Route: 058
  3. TRAZODONE HCL [Concomitant]
     Active Substance: TRAZODONE HYDROCHLORIDE
  4. TRAMADOL HCL [Concomitant]
     Active Substance: TRAMADOL HYDROCHLORIDE
  5. ZYRTEC [Concomitant]
     Active Substance: CETIRIZINE HYDROCHLORIDE
  6. ELIQUIS [Concomitant]
     Active Substance: APIXABAN
  7. Macular Health Formula [Concomitant]
  8. NEMLUVIO [NEMOLIZUMAB] [Concomitant]
     Dosage: UNK

REACTIONS (3)
  - Injection site pain [Unknown]
  - Rash [Unknown]
  - Therapeutic response decreased [Unknown]
